FAERS Safety Report 25849123 (Version 1)
Quarter: 2025Q3

REPORT INFORMATION
  Report Type: Spontaneous
  Country: US (occurrence: None)
  Receive Date: 20250925
  Receipt Date: 20250925
  Transmission Date: 20251020
  Serious: Yes (Hospitalization)
  Sender: FDA-CTU
  Company Number: None

PATIENT
  Sex: Female

DRUGS (5)
  1. PULMOZYME [Suspect]
     Active Substance: DORNASE ALFA
     Indication: Cystic fibrosis lung
     Dosage: FREQUENCY : TWICE A DAY;?
     Route: 055
     Dates: start: 20250509
  2. SODIUM CHLOR INH SOLN (4ML) [Concomitant]
  3. FASENRA [Suspect]
     Active Substance: BENRALIZUMAB
  4. CAYSTON [Suspect]
     Active Substance: AZTREONAM
  5. TOBRAMYCIN [Suspect]
     Active Substance: TOBRAMYCIN

REACTIONS (2)
  - Respiratory disorder [None]
  - Maternal exposure during pregnancy [None]
